FAERS Safety Report 13159117 (Version 8)
Quarter: 2017Q1

REPORT INFORMATION
  Report Type: Spontaneous
  Country: CN (occurrence: CN)
  Receive Date: 20170127
  Receipt Date: 20170324
  Transmission Date: 20170428
  Serious: Yes (Death, Hospitalization, Other)
  Sender: FDA-Public Use
  Company Number: PHHY2017CN007870

PATIENT
  Age: 76 Year
  Sex: Female
  Weight: 45 kg

DRUGS (1)
  1. ACLASTA [Suspect]
     Active Substance: ZOLEDRONIC ACID
     Indication: OSTEOPOROSIS POSTMENOPAUSAL
     Dosage: 1 UNK, Q12MO
     Route: 041
     Dates: start: 20170103

REACTIONS (13)
  - Hepatic enzyme decreased [Unknown]
  - Death [Fatal]
  - Pleural effusion [Recovering/Resolving]
  - Ascites [Recovering/Resolving]
  - Cardiac failure [Recovering/Resolving]
  - Fatigue [Recovering/Resolving]
  - Generalised oedema [Recovering/Resolving]
  - White blood cell count increased [Recovering/Resolving]
  - Anaemia [Recovering/Resolving]
  - Pericardial effusion [Recovering/Resolving]
  - Lung infection [Recovering/Resolving]
  - Hepatic enzyme increased [Recovering/Resolving]
  - Oedema peripheral [Recovering/Resolving]

NARRATIVE: CASE EVENT DATE: 20170104
